FAERS Safety Report 4350105-9 (Version None)
Quarter: 2004Q2

REPORT INFORMATION
  Report Type: 
  Country: None (occurrence: None)
  Receive Date: 20040429
  Receipt Date: 20040416
  Transmission Date: 20050107
  Serious: Yes (Death)
  Sender: FDA-Public Use
  Company Number: SK-GLAXOSMITHKLINE-B0330434A

PATIENT
  Age: 72 Year
  Sex: Female

DRUGS (4)
  1. WELLBUTRIN SR [Suspect]
     Indication: DEPRESSION
     Dosage: 150MG TWICE PER DAY
     Route: 048
     Dates: start: 20040301, end: 20040320
  2. SALINE SOLUTION [Concomitant]
     Indication: DEHYDRATION
     Route: 042
     Dates: start: 20040322, end: 20040323
  3. DIGOXIN [Concomitant]
     Dosage: .125MCG TWICE PER DAY
     Route: 048
  4. MODURETIC 5-50 [Concomitant]
     Route: 048

REACTIONS (16)
  - ABULIA [None]
  - APHASIA [None]
  - CARDIOPULMONARY FAILURE [None]
  - CATATONIA [None]
  - CEREBRAL ATAXIA [None]
  - CONVULSION [None]
  - DECREASED ACTIVITY [None]
  - DEHYDRATION [None]
  - DEMENTIA [None]
  - DIZZINESS [None]
  - DYSPNOEA [None]
  - EPISTAXIS [None]
  - FATIGUE [None]
  - IMMOBILE [None]
  - LOSS OF CONSCIOUSNESS [None]
  - URINARY INCONTINENCE [None]
